FAERS Safety Report 15863382 (Version 2)
Quarter: 2019Q3

REPORT INFORMATION
  Report Type: Report from Study
  Country: KR (occurrence: KR)
  Receive Date: 20190124
  Receipt Date: 20190820
  Transmission Date: 20191004
  Serious: Yes (Death, Hospitalization)
  Sender: FDA-Public Use
  Company Number: KR-TAKEDA-2016TEU002020

PATIENT
  Age: 58 Year
  Sex: Female
  Weight: 64 kg

DRUGS (6)
  1. RABEKHAN [Concomitant]
     Indication: PROPHYLAXIS
     Dosage: UNK UNK, QD
     Route: 048
     Dates: start: 20150710, end: 20160224
  2. PLATLESS [Concomitant]
     Active Substance: CLOPIDOGREL BISULFATE
     Indication: PROPHYLAXIS
     Dosage: UNK UNK, QD
     Route: 048
     Dates: start: 20150710, end: 20160227
  3. GLIATILIN [Concomitant]
     Active Substance: CHOLINE ALFOSCERATE
     Indication: PROPHYLAXIS
     Dosage: UNK UNK, BID
     Route: 048
     Dates: start: 20150710, end: 20160227
  4. BORYUNG ASTRIX [Concomitant]
     Indication: PROPHYLAXIS
     Dosage: UNK UNK, QD
     Route: 048
     Dates: start: 20150710, end: 20160227
  5. ROVETIN [Concomitant]
     Indication: PROPHYLAXIS
     Dosage: UNK UNK, QD
     Route: 048
     Dates: start: 20150710, end: 20160224
  6. ALOGLIPTIN. [Suspect]
     Active Substance: ALOGLIPTIN
     Indication: TYPE 2 DIABETES MELLITUS
     Dosage: 25 MILLIGRAM
     Route: 048
     Dates: start: 20150710, end: 20160224

REACTIONS (2)
  - Pain [Not Recovered/Not Resolved]
  - Pneumonia [Fatal]

NARRATIVE: CASE EVENT DATE: 20160224
